FAERS Safety Report 5314609-4 (Version None)
Quarter: 2007Q2

REPORT INFORMATION
  Report Type: 
  Country: None (occurrence: None)
  Receive Date: 20070425
  Receipt Date: 20070411
  Transmission Date: 20071010
  Serious: Yes (Other)
  Sender: FDA-Public Use
  Company Number: CHPA2007US04938

PATIENT
  Sex: Female

DRUGS (1)
  1. EXCEDRIN (MIGRAINE) [Suspect]
     Indication: MIGRAINE
     Dosage: 6 DF ON UNKNOWN DATE + 3 MORE BEFORE BED, ORAL
     Route: 048

REACTIONS (3)
  - EYE HAEMORRHAGE [None]
  - HYPOCOAGULABLE STATE [None]
  - OVERDOSE [None]
